FAERS Safety Report 9421169 (Version 1)
Quarter: 2013Q3

REPORT INFORMATION
  Report Type: Spontaneous
  Country: US (occurrence: US)
  Receive Date: 20130725
  Receipt Date: 20130725
  Transmission Date: 20140515
  Serious: Yes (Death, Other)
  Sender: FDA-Public Use
  Company Number: US-ACTAVIS-2013-12644

PATIENT
  Age: 10 Year
  Sex: Female
  Weight: 45 kg

DRUGS (3)
  1. ACETAMINOPHEN-CODEINE PHOSPHATE (AMALLC) [Suspect]
     Indication: PAIN
     Dosage: 20-40 MG CODEINE, Q4H
     Route: 065
  2. DIAZEPAM (WATSON LABORATORIES) [Suspect]
     Indication: MUSCLE SPASMS
     Dosage: 2-4 MG EVERY 4 HOURS AS NEEDED
     Route: 065
  3. BUDESONIDE [Concomitant]
     Indication: BRONCHIAL HYPERREACTIVITY
     Dosage: UNK
     Route: 055

REACTIONS (2)
  - Respiratory depression [Fatal]
  - Pulmonary oedema [Fatal]
